FAERS Safety Report 8824975 (Version 1)
Quarter: 2012Q4

REPORT INFORMATION
  Report Type: 
  Country: US (occurrence: US)
  Receive Date: 20121004
  Receipt Date: 20121004
  Transmission Date: 20130627
  Serious: No
  Sender: FDA-Public Use
  Company Number: US-PFIZER INC-2012245575

PATIENT
  Age: 61 Year
  Sex: Female
  Weight: 61.68 kg

DRUGS (3)
  1. PRISTIQ [Suspect]
     Indication: ANXIETY
     Dosage: 50 mg, daily
     Dates: start: 20120716, end: 2012
  2. PRISTIQ [Suspect]
     Indication: DEPRESSION
     Dosage: 50 mg, every other day (alternate day)
     Dates: start: 2012
  3. VAGIFEM [Concomitant]
     Indication: HORMONE THERAPY
     Dosage: UNK

REACTIONS (8)
  - Mental disorder [Unknown]
  - Mood swings [Unknown]
  - Emotional disorder [Unknown]
  - Malaise [Unknown]
  - Discomfort [Unknown]
  - Headache [Unknown]
  - Pain [Unknown]
  - Feeling abnormal [Unknown]
